FAERS Safety Report 6607439-4 (Version None)
Quarter: 2010Q1

REPORT INFORMATION
  Report Type: 
  Country: None (occurrence: None)
  Receive Date: 20100301
  Receipt Date: 20100219
  Transmission Date: 20100710
  Serious: Yes (Death, Hospitalization)
  Sender: FDA-Public Use
  Company Number: US-CUBIST-2009S1000417

PATIENT
  Age: 30 Year
  Sex: Female
  Weight: 69.9 kg

DRUGS (16)
  1. CUBICIN [Suspect]
     Indication: STREPTOCOCCAL BACTERAEMIA
     Route: 042
     Dates: start: 20090511, end: 20090521
  2. CUBICIN [Suspect]
     Route: 042
     Dates: start: 20090511, end: 20090521
  3. CUBICIN [Suspect]
     Route: 042
     Dates: start: 20090511, end: 20090521
  4. CUBICIN [Suspect]
     Route: 042
     Dates: start: 20090511, end: 20090521
  5. CUBICIN [Suspect]
     Route: 042
     Dates: start: 20090511, end: 20090521
  6. CUBICIN [Suspect]
     Route: 042
     Dates: start: 20090511, end: 20090521
  7. CUBICIN [Suspect]
     Route: 042
     Dates: start: 20090511, end: 20090521
  8. CUBICIN [Suspect]
     Route: 042
     Dates: start: 20090529, end: 20090709
  9. ASPIRIN [Concomitant]
     Indication: DRUG USE FOR UNKNOWN INDICATION
     Route: 048
  10. CITALOPRAM HYDROBROMIDE [Concomitant]
     Indication: ANXIETY
     Route: 048
  11. NEURONTIN [Concomitant]
     Indication: BACK PAIN
     Route: 048
  12. CALCIUM /01725101/ [Concomitant]
     Indication: MEDICAL DIET
     Dosage: DOSE UNIT:1 UNKNOWN
     Route: 048
  13. NAPROXEN [Concomitant]
     Indication: BACK PAIN
     Route: 048
  14. FERROUS GLUCONATE [Concomitant]
     Indication: DRUG USE FOR UNKNOWN INDICATION
  15. FOLIC ACID [Concomitant]
     Indication: DRUG USE FOR UNKNOWN INDICATION
  16. ASCORBIC ACID [Concomitant]
     Indication: DRUG USE FOR UNKNOWN INDICATION

REACTIONS (5)
  - ANTIMICROBIAL SUSCEPTIBILITY TEST RESISTANT [None]
  - AORTIC VALVE REPLACEMENT [None]
  - BACTERAEMIA [None]
  - CARDIAC VALVE VEGETATION [None]
  - DRUG INEFFECTIVE FOR UNAPPROVED INDICATION [None]
